FAERS Safety Report 6256416-4 (Version None)
Quarter: 2009Q3

REPORT INFORMATION
  Report Type: 
  Country: None (occurrence: None)
  Receive Date: 20090701
  Receipt Date: 20090701
  Transmission Date: 20100115
  Serious: Yes (Hospitalization, Other)
  Sender: FDA-Public Use
  Company Number: None

PATIENT
  Age: 55 Year
  Sex: Female
  Weight: 73.0291 kg

DRUGS (2)
  1. ELMIRON [Suspect]
     Indication: CYSTITIS INTERSTITIAL
     Dosage: 1 CAPSULES 3 TIMES DAILY PO
     Route: 048
     Dates: start: 20090601, end: 20090604
  2. ELMIRON [Suspect]
     Indication: URINARY INCONTINENCE
     Dosage: 1 CAPSULES 3 TIMES DAILY PO
     Route: 048
     Dates: start: 20090601, end: 20090604

REACTIONS (6)
  - DIARRHOEA [None]
  - DIZZINESS [None]
  - GASTRITIS [None]
  - HEADACHE [None]
  - IRRITABLE BOWEL SYNDROME [None]
  - RECTAL HAEMORRHAGE [None]
